FAERS Safety Report 13105336 (Version 1)
Quarter: 2017Q1

REPORT INFORMATION
  Report Type: Spontaneous
  Country: IT (occurrence: IT)
  Receive Date: 20170111
  Receipt Date: 20170111
  Transmission Date: 20170428
  Serious: Yes (Hospitalization)
  Sender: FDA-Public Use
  Company Number: IT-ABBVIE-17P-083-1834054-00

PATIENT
  Age: 5 Year
  Sex: Female

DRUGS (2)
  1. DEPAKIN [Suspect]
     Active Substance: VALPROATE SODIUM
     Indication: EPILEPSY
     Route: 048
  2. ZARONTIN [Interacting]
     Active Substance: ETHOSUXIMIDE
     Indication: EPILEPSY
     Route: 048
     Dates: start: 20160708, end: 20160718

REACTIONS (2)
  - Drug interaction [None]
  - Urticaria [Unknown]

NARRATIVE: CASE EVENT DATE: 20160718
